FAERS Safety Report 20994380 (Version 1)
Quarter: 2022Q2

REPORT INFORMATION
  Report Type: Spontaneous
  Country: JO (occurrence: JO)
  Receive Date: 20220622
  Receipt Date: 20220622
  Transmission Date: 20220721
  Serious: Yes (Death)
  Sender: FDA-Public Use
  Company Number: JO-STRIDES ARCOLAB LIMITED-2022SP007500

PATIENT

DRUGS (29)
  1. PREDNISOLONE [Suspect]
     Active Substance: PREDNISOLONE
     Indication: Burkitt^s lymphoma
     Dosage: 60 MILLIGRAM/SQ. METER, CYCLICAL (CYCLE 1: ON DAYS 1-7)
     Route: 065
  2. ETOPOSIDE [Suspect]
     Active Substance: ETOPOSIDE
     Indication: Burkitt^s lymphoma
     Dosage: 80 MILLIGRAM/SQ. METER, CYCLICAL (CYCLE 2,4,6: ON DAYS 4-5)
     Route: 065
  3. DEXAMETHASONE [Suspect]
     Active Substance: DEXAMETHASONE
     Indication: Burkitt^s lymphoma
     Dosage: 10 MILLIGRAM/SQ. METER, CYCLICAL (CYCLE 3, 5, AND 7. ON DAYS 4-5)
     Route: 065
  4. CYCLOPHOSPHAMIDE [Suspect]
     Active Substance: CYCLOPHOSPHAMIDE
     Indication: Burkitt^s lymphoma
     Dosage: 200 MILLIGRAM/SQ. METER, CYCLICAL (CYCLE 1: ON DAYS 1-5)
     Route: 065
  5. CYCLOPHOSPHAMIDE [Suspect]
     Active Substance: CYCLOPHOSPHAMIDE
     Dosage: 200 MILLIGRAM/SQ. METER, CYCLICAL (CYCLES: 3,5, AND 7. ON DAYS 1-5)
     Route: 065
  6. IFOSFAMIDE [Suspect]
     Active Substance: IFOSFAMIDE
     Indication: Burkitt^s lymphoma
     Dosage: 800 MILLIGRAM/SQ. METER, CYCLICAL (CYCLE 2,4,6: ON DAYS 1-5)
     Route: 065
  7. METHOTREXATE [Suspect]
     Active Substance: METHOTREXATE
     Indication: Burkitt^s lymphoma
     Dosage: 1500 MILLIGRAM/SQ. METER, CYCLICAL (CYCLE 2,4,6: ON DAY 1)
     Route: 065
  8. METHOTREXATE [Suspect]
     Active Substance: METHOTREXATE
     Dosage: 1500 MILLIGRAM/SQ. METER, CYCLICAL (CYCLES: 3,5, AND 7. ON DAY 1)
     Route: 065
  9. METHOTREXATE [Suspect]
     Active Substance: METHOTREXATE
     Dosage: 15 MILLIGRAM, CYCLICAL (CYCLES: 2, 4 AND 6; ON DAY 1)
     Route: 037
  10. METHOTREXATE [Suspect]
     Active Substance: METHOTREXATE
     Dosage: 15 MILLIGRAM, CYCLICAL (CYCLES: 3,5 AND 7. ON DAY 1)
     Route: 037
  11. VINCRISTINE [Suspect]
     Active Substance: VINCRISTINE
     Indication: Burkitt^s lymphoma
     Dosage: 2 MILLIGRAM, CYCLICAL (CYCLE 2,4,6: ON DAY 1)
     Route: 065
  12. VINCRISTINE [Suspect]
     Active Substance: VINCRISTINE
     Dosage: 2 MILLIGRAM, CYCLICAL (CYCLE 3,5, AND 7: ON DAY 1)
     Route: 065
  13. CYTARABINE [Suspect]
     Active Substance: CYTARABINE
     Indication: Burkitt^s lymphoma
     Dosage: 1000 MG/M2, CYCLICAL (CYCLE 2,4,6: ON DAYS 4-5)
     Route: 065
  14. CYTARABINE [Suspect]
     Active Substance: CYTARABINE
     Dosage: 40 MILLIGRAM, CYCLICAL (CYCLE 2,4,6: ON DAY 1)
     Route: 037
  15. CYTARABINE [Suspect]
     Active Substance: CYTARABINE
     Dosage: 40 MILLIGRAM, CYCLICAL (CYCLES: 3,5 AND 7. ON DAY 1)
     Route: 037
  16. HYDROCORTISONE [Suspect]
     Active Substance: HYDROCORTISONE
     Indication: Burkitt^s lymphoma
     Dosage: 50 MILLIGRAM, CYCLICAL (CYCLE: 2, 4 AND 6. ON DAY 1)
     Route: 037
  17. HYDROCORTISONE [Suspect]
     Active Substance: HYDROCORTISONE
     Dosage: 50 MILLIGRAM, CYCLICAL (CYCLE: 3,5 AND 7. ON DAY 1)
     Route: 037
  18. RITUXIMAB [Suspect]
     Active Substance: RITUXIMAB
     Indication: Burkitt^s lymphoma
     Dosage: 50 MILLIGRAM/SQ. METER, CYCLICAL (CYCLE 2, ON DAY-8)
     Route: 065
  19. RITUXIMAB [Suspect]
     Active Substance: RITUXIMAB
     Dosage: 375 MILLIGRAM/SQ. METER, CYCLICAL (CYCLE 2, ON DAY-10)
     Route: 065
  20. RITUXIMAB [Suspect]
     Active Substance: RITUXIMAB
     Dosage: 375 MILLIGRAM/SQ. METER, CYCLICAL (CYCLE 4 AND 6, ON DAY-8)
     Route: 065
  21. RITUXIMAB [Suspect]
     Active Substance: RITUXIMAB
     Dosage: 375 MILLIGRAM/SQ. METER, CYCLICAL (CYCLES: 3,5 AND 7; ON DAY 8)
     Route: 065
  22. DOXORUBICIN [Suspect]
     Active Substance: DOXORUBICIN
     Indication: Burkitt^s lymphoma
     Dosage: 25 MILLIGRAM/SQ. METER, CYCLICAL (CYCLE 3, 5, AND 7. ON DAYS 4-5)
     Route: 065
  23. MESNA [Concomitant]
     Active Substance: MESNA
     Indication: Chemotherapy side effect prophylaxis
     Dosage: 200 MILLIGRAM/SQ. METER, CYCLICAL (CYCLE 2,4,6: ON DAYS 1-5, AT HOURS 0, 4, AND 8 AFTER IFOSFAMIDE)
     Route: 065
  24. LEUCOVORIN [Concomitant]
     Active Substance: LEUCOVORIN
     Indication: Chemotherapy side effect prophylaxis
     Dosage: 25 MILLIGRAM/SQ. METER, CYCLICAL (CYCLE 2,4,6: ON DAY 1, AT 36 HOURS AFTER STARTING METHOTREXATE INF
     Route: 065
  25. LEUCOVORIN [Concomitant]
     Active Substance: LEUCOVORIN
     Dosage: 10 MILLIGRAM/SQ. METER (SCHEDULED TO RECEIVE THIS DOSE UNTIL METHOTREXATE LEVEL {0.05 MICROMOL/L)
     Route: 065
  26. LEUCOVORIN [Concomitant]
     Active Substance: LEUCOVORIN
     Dosage: 25 MILLIGRAM/SQ. METER (SCHEDULED TO RECEIVE AT 36 HOURS AFTER STARTING METHOTREXATE INFUSION. CYCLE
     Route: 065
  27. LEUCOVORIN [Concomitant]
     Active Substance: LEUCOVORIN
     Dosage: 10 MILLIGRAM/SQ. METER (SCHEDULED TO RECEIVE UNTIL METHOTREXATE LEVEL {0.05 MICROMOL/L)
     Route: 065
  28. FILGRASTIM [Concomitant]
     Active Substance: FILGRASTIM
     Indication: Chemotherapy side effect prophylaxis
     Dosage: 5 MICROGRAM/KILOGRAM, CYCLICAL (CYCLE 2, 4 AND 6; STARTING ON DAY-7)
     Route: 065
  29. FILGRASTIM [Concomitant]
     Active Substance: FILGRASTIM
     Dosage: 5 MICROGRAM/KILOGRAM, CYCLICAL (CYCLE 3, 5 AND 7, STARTING ON DAY-7)
     Route: 065

REACTIONS (2)
  - Sepsis [Fatal]
  - Off label use [Unknown]
